FAERS Safety Report 9977315 (Version 1)
Quarter: 2014Q1

REPORT INFORMATION
  Report Type: Report from Study
  Country: US (occurrence: US)
  Receive Date: 20140306
  Receipt Date: 20140306
  Transmission Date: 20141002
  Serious: No
  Sender: FDA-Public Use
  Company Number: US-ABBVIE-13P-163-1167427-00

PATIENT
  Sex: Male
  Weight: 108.05 kg

DRUGS (2)
  1. HUMIRA [Suspect]
     Indication: POLYARTHRITIS
     Dates: start: 2011, end: 2012
  2. DIOVAN [Concomitant]
     Indication: HYPERTENSION

REACTIONS (2)
  - Polyarthritis [Not Recovered/Not Resolved]
  - Off label use [Not Recovered/Not Resolved]
